FAERS Safety Report 6681156-7 (Version None)
Quarter: 2010Q2

REPORT INFORMATION
  Report Type: 
  Country: None (occurrence: None)
  Receive Date: 20100414
  Receipt Date: 20100405
  Transmission Date: 20101027
  Serious: Yes (Other)
  Sender: FDA-Public Use
  Company Number: US-ASTRAZENECA-2010SE14741

PATIENT
  Age: 670 Month
  Sex: Female
  Weight: 108.9 kg

DRUGS (24)
  1. PRILOSEC [Suspect]
     Indication: GASTROOESOPHAGEAL REFLUX DISEASE
     Route: 048
  2. AGGRENOX [Suspect]
     Indication: ARTERIAL OCCLUSIVE DISEASE
     Dosage: TWO TIMES A DAY
     Route: 048
     Dates: start: 20091201
  3. BUPROPION [Suspect]
     Indication: DEPRESSION
     Route: 048
  4. ZYRTEC [Suspect]
     Indication: HYPERSENSITIVITY
     Route: 048
     Dates: start: 20090101
  5. KLONOPIN [Suspect]
     Indication: ANXIETY
     Route: 048
  6. KLONOPIN [Suspect]
     Indication: PANIC ATTACK
     Route: 048
  7. EPIPEN [Suspect]
     Indication: HYPERSENSITIVITY
     Route: 062
  8. FLONASE [Suspect]
     Indication: HYPERSENSITIVITY
     Dosage: 50 MCG TWO SPRAYS DAILY
     Route: 045
  9. FLOVENT [Suspect]
     Indication: ASTHMA
     Dosage: 110 MCG 2 PUFFS TWO TIMES A DAY
     Route: 055
  10. GABAPENTIN [Suspect]
     Indication: DIABETIC NEUROPATHY
     Route: 048
     Dates: start: 20040101
  11. GABAPENTIN [Suspect]
     Indication: FIBROMYALGIA
     Route: 048
     Dates: start: 20040101
  12. NITROLINGUAL [Suspect]
     Indication: CHEST PAIN
     Route: 065
  13. VICODIN [Suspect]
     Indication: ARTHRALGIA
     Dosage: 7.5 MG/325 MG EVERY FOUR HOURS
     Route: 048
     Dates: start: 20060101
  14. LORTAB [Suspect]
     Indication: DRUG USE FOR UNKNOWN INDICATION
     Route: 048
  15. LOZOL [Suspect]
     Indication: FLUID RETENTION
     Route: 048
     Dates: start: 20020101
  16. METFORMIN HCL [Suspect]
     Indication: DIABETES MELLITUS
     Route: 048
  17. METFORMIN HYDROCHLORIDE/SITAGLIPTIN [Suspect]
     Indication: DIABETES MELLITUS
     Dosage: 50/500 MG DAILY
     Route: 048
  18. VENTOLIN [Suspect]
     Indication: ASTHMA
     Dosage: 90 MCG TWO PUFFS EVERY TWO HOURS
     Route: 055
  19. SIMVASTATIN [Suspect]
     Indication: DRUG USE FOR UNKNOWN INDICATION
     Route: 048
  20. CARAFATE [Suspect]
     Indication: GASTROOESOPHAGEAL REFLUX DISEASE
     Route: 048
  21. IMITREX [Suspect]
     Indication: MIGRAINE
     Route: 048
  22. ZANAFLEX [Suspect]
     Indication: MUSCLE SPASMS
     Route: 048
     Dates: start: 20090101
  23. VALSARTAN [Suspect]
     Indication: HYPERTENSION
     Route: 048
     Dates: start: 20020101
  24. MULTI-VITAMINS [Suspect]
     Indication: DRUG USE FOR UNKNOWN INDICATION
     Route: 048

REACTIONS (2)
  - CARDIAC DISORDER [None]
  - MEMORY IMPAIRMENT [None]
